FAERS Safety Report 9249545 (Version 1)
Quarter: 2013Q2

REPORT INFORMATION
  Report Type: Spontaneous
  Country: US (occurrence: US)
  Receive Date: 20130423
  Receipt Date: 20130423
  Transmission Date: 20140414
  Serious: Yes (Other)
  Sender: FDA-Public Use
  Company Number: CHPA2013US006709

PATIENT
  Age: 68 Year
  Sex: Female

DRUGS (4)
  1. VOLTAREN GEL [Suspect]
     Indication: ARTHRALGIA
     Dosage: 2 G, TWO TO THREE TIMES DAILY AS NEEDED
     Route: 061
     Dates: start: 2011, end: 2012
  2. HYDROCODONE W/ACETAMINOPHEN [Concomitant]
     Indication: PAIN
     Dosage: UNK, UNK
     Route: 048
     Dates: start: 2012
  3. MOTRIN [Concomitant]
     Dosage: UNK, UNK
     Route: 065
     Dates: start: 20130320, end: 20130324
  4. MS CONTIN [Concomitant]
     Indication: PAIN
     Dosage: 15 MG, UNK
     Route: 048
     Dates: start: 20130320

REACTIONS (7)
  - Atrial fibrillation [Not Recovered/Not Resolved]
  - Chest pain [Recovered/Resolved]
  - Hyperhidrosis [Recovered/Resolved]
  - Fibromyalgia [Not Recovered/Not Resolved]
  - Liver function test abnormal [Recovered/Resolved]
  - Drug administered at inappropriate site [Unknown]
  - Underdose [Unknown]
